FAERS Safety Report 26176110 (Version 1)
Quarter: 2025Q4

REPORT INFORMATION
  Report Type: Spontaneous
  Country: US (occurrence: None)
  Receive Date: 20251218
  Receipt Date: 20251218
  Transmission Date: 20260118
  Serious: No
  Sender: FDA-CTU
  Company Number: None

PATIENT
  Sex: Female

DRUGS (1)
  1. IBRANCE [Suspect]
     Active Substance: PALBOCICLIB
     Indication: Breast cancer female
     Dosage: 100 MG DAILY ORAL
     Route: 048
     Dates: start: 20230220

REACTIONS (5)
  - Product administration error [None]
  - Extra dose administered [None]
  - Inappropriate schedule of product administration [None]
  - Full blood count decreased [None]
  - Illness [None]
